FAERS Safety Report 9811786 (Version 4)
Quarter: 2015Q3

REPORT INFORMATION
  Report Type: Spontaneous
  Country: US (occurrence: US)
  Receive Date: 20140110
  Receipt Date: 20150728
  Transmission Date: 20151125
  Serious: Yes (Other)
  Sender: FDA-Public Use
  Company Number: US-SANOFI-AVENTIS-2013SA055858

PATIENT
  Age: 44 Year
  Sex: Male

DRUGS (3)
  1. PLAVIX [Suspect]
     Active Substance: CLOPIDOGREL BISULFATE
     Indication: ACUTE CORONARY SYNDROME
     Route: 048
     Dates: start: 20090501, end: 20110630
  2. PLAVIX [Suspect]
     Active Substance: CLOPIDOGREL BISULFATE
     Indication: STENT PLACEMENT
     Route: 048
     Dates: start: 20090501, end: 20110630
  3. ASPIRIN. [Concomitant]
     Active Substance: ASPIRIN
     Dates: start: 1980

REACTIONS (5)
  - Dysphagia [Unknown]
  - Multiple injuries [Unknown]
  - Cerebrovascular accident [Unknown]
  - Tinnitus [Unknown]
  - Cerebral haemorrhage [Unknown]

NARRATIVE: CASE EVENT DATE: 201106
